FAERS Safety Report 7003778-6 (Version None)
Quarter: 2010Q3

REPORT INFORMATION
  Report Type: 
  Country: None (occurrence: None)
  Receive Date: 20100920
  Receipt Date: 20091204
  Transmission Date: 20110219
  Serious: No
  Sender: FDA-Public Use
  Company Number: US-WYE-H12495009

PATIENT
  Sex: Female
  Weight: 70.82 kg

DRUGS (10)
  1. PRISTIQ [Suspect]
     Indication: DEPRESSION
     Route: 048
     Dates: start: 20090107
  2. LITHIUM [Concomitant]
  3. XANAX [Concomitant]
  4. XALATAN [Concomitant]
  5. POTASSIUM [Concomitant]
  6. PREDNISONE [Concomitant]
  7. SPIRIVA [Concomitant]
  8. AMLODIPINE [Concomitant]
  9. LASIX [Concomitant]
  10. IMURAN [Concomitant]

REACTIONS (1)
  - DRUG EFFECT DECREASED [None]
